FAERS Safety Report 13537746 (Version 4)
Quarter: 2017Q3

REPORT INFORMATION
  Report Type: Spontaneous
  Country: US (occurrence: US)
  Receive Date: 20170511
  Receipt Date: 20170728
  Transmission Date: 20171127
  Serious: Yes (Hospitalization)
  Sender: FDA-Public Use
  Company Number: US-ACTELION-A-NJ2017-153724

PATIENT
  Age: 63 Year
  Sex: Female
  Weight: 81.63 kg

DRUGS (4)
  1. REMODULIN [Concomitant]
     Active Substance: TREPROSTINIL
  2. REVATIO [Concomitant]
     Active Substance: SILDENAFIL CITRATE
  3. TRACLEER [Suspect]
     Active Substance: BOSENTAN
     Indication: PULMONARY ARTERIAL HYPERTENSION
     Dosage: 125 MG, BID
     Route: 048
  4. SILDENAFIL. [Concomitant]
     Active Substance: SILDENAFIL

REACTIONS (7)
  - Peripheral swelling [Unknown]
  - Back pain [Unknown]
  - Diarrhoea [Unknown]
  - Condition aggravated [Unknown]
  - Pain in extremity [Unknown]
  - Cough [Unknown]
  - Dyspnoea [Unknown]
